FAERS Safety Report 6210332-2 (Version None)
Quarter: 2009Q2

REPORT INFORMATION
  Report Type: 
  Country: None (occurrence: None)
  Receive Date: 20090601
  Receipt Date: 20090520
  Transmission Date: 20091009
  Serious: Yes (Other)
  Sender: FDA-Public Use
  Company Number: PHEH2009US02455

PATIENT
  Sex: Female
  Weight: 115.74 kg

DRUGS (8)
  1. TEKTURNA [Suspect]
     Indication: HYPERTENSION
     Dosage: 150 MG, QD
     Route: 048
     Dates: start: 20090227
  2. TEKTURNA [Suspect]
     Dosage: 300 MG, QD
     Route: 048
     Dates: end: 20090318
  3. ASPIRIN [Concomitant]
     Dosage: 81 MG, QD
  4. ANTIDEPRESSANTS [Concomitant]
     Dosage: UNK, UNK
  5. LITHIUM CARBONATE [Concomitant]
     Dosage: 300 MG QAM, 450 MG QPM
     Route: 048
  6. CITALOPRAM HYDROBROMIDE [Concomitant]
     Dosage: 20 MG, QD
     Route: 048
  7. AMBIEN [Concomitant]
     Dosage: 10 MG, QHS
     Route: 048
  8. PERPHENAZINE [Concomitant]
     Dosage: 12 MG, QHS
     Route: 048

REACTIONS (6)
  - BLOOD PRESSURE INCREASED [None]
  - CARDIAC DISORDER [None]
  - DRUG INEFFECTIVE [None]
  - JOINT SWELLING [None]
  - OEDEMA PERIPHERAL [None]
  - SWELLING FACE [None]
